FAERS Safety Report 11157488 (Version 2)
Quarter: 2015Q2

REPORT INFORMATION
  Report Type: Spontaneous
  Country: DE (occurrence: DE)
  Receive Date: 20150603
  Receipt Date: 20150622
  Transmission Date: 20150821
  Serious: Yes (Other)
  Sender: FDA-Public Use
  Company Number: PHHY2015DE065981

PATIENT
  Age: 72 Year
  Sex: Female

DRUGS (1)
  1. CO-DIOVAN [Suspect]
     Active Substance: HYDROCHLOROTHIAZIDE\VALSARTAN
     Indication: PRODUCT USED FOR UNKNOWN INDICATION
     Dosage: 1 DF, (80 MG VALS AND 12.5 MG AMLO)
     Route: 065

REACTIONS (2)
  - Hypotension [Unknown]
  - Aortic aneurysm [Unknown]
